FAERS Safety Report 11780287 (Version 1)
Quarter: 2015Q4

REPORT INFORMATION
  Report Type: Spontaneous
  Country: US (occurrence: US)
  Receive Date: 20151126
  Receipt Date: 20151126
  Transmission Date: 20160305
  Serious: No
  Sender: FDA-Public Use
  Company Number: US-JNJFOC-20150926383

PATIENT
  Age: 73 Year
  Sex: Male
  Weight: 114.31 kg

DRUGS (2)
  1. TYLENOL 8 HR ARTHRITIS PAIN [Suspect]
     Active Substance: ACETAMINOPHEN
     Route: 048
  2. TYLENOL 8 HR ARTHRITIS PAIN [Suspect]
     Active Substance: ACETAMINOPHEN
     Indication: ARTHRALGIA
     Dosage: EVERY 4 - 5 HOURS
     Route: 048

REACTIONS (2)
  - Increased tendency to bruise [Not Recovered/Not Resolved]
  - Intentional product use issue [Not Recovered/Not Resolved]
